FAERS Safety Report 23656281 (Version 1)
Quarter: 2024Q1

REPORT INFORMATION
  Report Type: Report from Study
  Country: AR (occurrence: AR)
  Receive Date: 20240321
  Receipt Date: 20240321
  Transmission Date: 20240409
  Serious: Yes (Death, Hospitalization, Other)
  Sender: FDA-Public Use
  Company Number: AR-ABBVIE-5687240

PATIENT
  Sex: Female

DRUGS (1)
  1. HUMIRA [Suspect]
     Active Substance: ADALIMUMAB
     Indication: Rheumatoid arthritis
     Dosage: FORM STRENGTH: 40 MG
     Route: 058
     Dates: start: 20171207, end: 202308

REACTIONS (4)
  - Cardio-respiratory arrest [Fatal]
  - Arthritis [Not Recovered/Not Resolved]
  - Anaemia [Unknown]
  - Multiple organ dysfunction syndrome [Fatal]
